FAERS Safety Report 25238050 (Version 1)
Quarter: 2025Q2

REPORT INFORMATION
  Report Type: Report from Study
  Country: US (occurrence: US)
  Receive Date: 20250425
  Receipt Date: 20250425
  Transmission Date: 20250716
  Serious: Yes (Other)
  Sender: TEVA
  Company Number: US-TEVA-VS-3322791

PATIENT
  Age: 65 Year
  Sex: Female

DRUGS (10)
  1. AUSTEDO [Suspect]
     Active Substance: DEUTETRABENAZINE
     Indication: Tardive dyskinesia
     Dosage: 9 MG TAKE 1 TABLET BY MOUTH AT BEDTIME FOR INVOLUNTARY MOVEMENTS (TD)
     Route: 048
  2. ATENOLOL [Concomitant]
     Active Substance: ATENOLOL
  3. diclofenac s gel [Concomitant]
  4. diclofenac s tbe [Concomitant]
  5. ESZOPICLONE [Concomitant]
     Active Substance: ESZOPICLONE
  6. LAMOTRIGINE [Concomitant]
     Active Substance: LAMOTRIGINE
  7. loperamide h cap [Concomitant]
  8. LURASIDONE [Concomitant]
     Active Substance: LURASIDONE
  9. MESALAMINE [Concomitant]
     Active Substance: MESALAMINE
  10. SUMATRIPTAN [Concomitant]
     Active Substance: SUMATRIPTAN

REACTIONS (13)
  - Crohn^s disease [Not Recovered/Not Resolved]
  - Speech disorder [Not Recovered/Not Resolved]
  - Fatigue [Not Recovered/Not Resolved]
  - Product dose omission issue [Unknown]
  - Loss of personal independence in daily activities [Not Recovered/Not Resolved]
  - Hypersomnia [Not Recovered/Not Resolved]
  - Depression [Not Recovered/Not Resolved]
  - Disturbance in attention [Not Recovered/Not Resolved]
  - Memory impairment [Not Recovered/Not Resolved]
  - Weight increased [Not Recovered/Not Resolved]
  - Hyperphagia [Not Recovered/Not Resolved]
  - Restlessness [Not Recovered/Not Resolved]
  - Diarrhoea [Not Recovered/Not Resolved]
